FAERS Safety Report 25267669 (Version 2)
Quarter: 2025Q3

REPORT INFORMATION
  Report Type: Spontaneous
  Country: EU (occurrence: EU)
  Receive Date: 20250505
  Receipt Date: 20250809
  Transmission Date: 20251020
  Serious: Yes (Death)
  Sender: ALEXION PHARMACEUTICALS
  Company Number: None

PATIENT
  Age: 74 Year
  Sex: Male
  Weight: 50 kg

DRUGS (1)
  1. SOLIRIS [Suspect]
     Active Substance: ECULIZUMAB
     Indication: Atypical haemolytic uraemic syndrome

REACTIONS (5)
  - Pharyngolaryngeal abscess [Fatal]
  - Ear infection [Fatal]
  - Bone erosion [Fatal]
  - Laryngeal nerve palsy [Fatal]
  - Bacterial infection [Fatal]

NARRATIVE: CASE EVENT DATE: 20250225
